FAERS Safety Report 9682695 (Version 1)
Quarter: 2013Q4

REPORT INFORMATION
  Report Type: Spontaneous
  Country: DE (occurrence: DE)
  Receive Date: 20131024
  Receipt Date: 20131024
  Transmission Date: 20140711
  Serious: Yes (Congenital Anomaly, Other)
  Sender: FDA-Public Use
  Company Number: DE-DRREDDYS-GER/GER/13/0035013

PATIENT
  Age: 0 Year
  Sex: Male
  Weight: 2.52 kg

DRUGS (5)
  1. RAMIPRIL [Suspect]
     Indication: PRODUCT USED FOR UNKNOWN INDICATION
     Route: 064
  2. OBSIDAN [Suspect]
     Indication: PRODUCT USED FOR UNKNOWN INDICATION
     Route: 064
     Dates: start: 20090820, end: 20100412
  3. DOPEGYT [Suspect]
     Indication: PRODUCT USED FOR UNKNOWN INDICATION
     Route: 064
     Dates: start: 20090922, end: 20100412
  4. UTROGEST [Suspect]
     Indication: PRODUCT USED FOR UNKNOWN INDICATION
     Route: 064
     Dates: start: 20091105, end: 20091126
  5. FOLSAURE [Concomitant]
     Indication: PRODUCT USED FOR UNKNOWN INDICATION
     Route: 064

REACTIONS (5)
  - Ureteric dilatation [Not Recovered/Not Resolved]
  - Congenital hydronephrosis [Not Recovered/Not Resolved]
  - Premature baby [Unknown]
  - Respiratory disorder neonatal [Unknown]
  - Foetal exposure during pregnancy [Unknown]
